FAERS Safety Report 8827858 (Version 1)
Quarter: 2012Q4

REPORT INFORMATION
  Report Type: 
  Country: CN (occurrence: CN)
  Receive Date: 20121005
  Receipt Date: 20121005
  Transmission Date: 20130627
  Serious: Yes (Death, Hospitalization)
  Sender: FDA-Public Use
  Company Number: CN-JNJFOC-20121001138

PATIENT
  Age: 4 Year
  Sex: Male

DRUGS (6)
  1. DOXORUBICIN HYDROCHLORIDE [Suspect]
     Indication: ANGIOCENTRIC LYMPHOMA
     Route: 042
  2. CYCLOPHOSPHAMIDE [Suspect]
     Indication: ANGIOCENTRIC LYMPHOMA
     Route: 065
  3. VINCRISTINE [Suspect]
     Indication: ANGIOCENTRIC LYMPHOMA
     Route: 065
  4. PREDNISONE [Suspect]
     Indication: ANGIOCENTRIC LYMPHOMA
     Route: 065
  5. L-ASPARAGINASE [Suspect]
     Indication: ANGIOCENTRIC LYMPHOMA
     Route: 065
  6. UNSPECIFIED INGREDIENT [Suspect]
     Indication: PROPHYLAXIS
     Route: 037

REACTIONS (5)
  - Angiocentric lymphoma [Fatal]
  - Drug ineffective [Fatal]
  - Pneumonitis [Unknown]
  - Swelling face [Unknown]
  - Palatal disorder [None]
